FAERS Safety Report 5092129-2 (Version None)
Quarter: 2006Q3

REPORT INFORMATION
  Report Type: 
  Country: None (occurrence: None)
  Receive Date: 20060825
  Receipt Date: 20060823
  Transmission Date: 20061208
  Serious: Yes (Hospitalization, Other)
  Sender: FDA-Public Use
  Company Number: FRWYE764623AUG06

PATIENT
  Age: 16 Year
  Sex: Female

DRUGS (2)
  1. IBUPROFEN + PSEUDOEPHEDRINE HCL [Suspect]
     Dosage: ORAL
     Route: 048
     Dates: start: 20060528, end: 20060607
  2. BACTRIM [Suspect]
     Dosage: ORAL
     Route: 048
     Dates: start: 20060528, end: 20060607

REACTIONS (10)
  - CYTOLYTIC HEPATITIS [None]
  - CYTOMEGALOVIRUS ANTIBODY POSITIVE [None]
  - ERYTHEMA [None]
  - HERPES SIMPLEX SEROLOGY POSITIVE [None]
  - LEUKOPENIA [None]
  - ODYNOPHAGIA [None]
  - PERIVASCULAR DERMATITIS [None]
  - PRURITUS [None]
  - PYREXIA [None]
  - THROMBOCYTOPENIA [None]
